FAERS Safety Report 6028257-4 (Version None)
Quarter: 2008Q4

REPORT INFORMATION
  Report Type: 
  Country: None (occurrence: None)
  Receive Date: 20081231
  Receipt Date: 20081231
  Transmission Date: 20090506
  Serious: Yes (Life-Threatening, Hospitalization)
  Sender: FDA-Public Use
  Company Number: None

PATIENT
  Age: 62 Year
  Sex: Female

DRUGS (1)
  1. PIPERACILLIN AND TAZOBACTAM [Suspect]
     Indication: URINE ANALYSIS ABNORMAL
     Dosage: 2.25 GM ONCE IV
     Route: 042
     Dates: start: 20081205, end: 20081205

REACTIONS (1)
  - ANAPHYLACTIC REACTION [None]
